FAERS Safety Report 7306561-7 (Version None)
Quarter: 2011Q1

REPORT INFORMATION
  Report Type: 
  Country: None (occurrence: None)
  Receive Date: 20110208
  Receipt Date: 20110128
  Transmission Date: 20110831
  Serious: Yes (Other)
  Sender: FDA-Public Use
  Company Number: 814885

PATIENT
  Age: 57 Year
  Sex: Male
  Weight: 100 kg

DRUGS (6)
  1. ATIVAN [Suspect]
     Indication: ALCOHOL WITHDRAWAL SYNDROME
     Dosage: PRN Q 1-2 HOURS INTRAVENOUS (NOT OTHERWISE SPECIFIED)
     Route: 042
  2. VERSED [Suspect]
     Indication: ALCOHOL WITHDRAWAL SYNDROME
     Dosage: PRN Q 1-2 HOURS INTRAVENOUS (NOT OTHERWISE SPECIFIED)
     Route: 042
  3. HALDOL [Suspect]
     Indication: ALCOHOL WITHDRAWAL SYNDROME
     Dosage: PRN Q 1-2 HOURS INTRAVENOUS (NOT OTHERWISE SPECIFIED)
     Route: 042
  4. PRECEDEX [Suspect]
     Indication: ALCOHOL WITHDRAWAL SYNDROME
     Dosage: INTRAVENOUS DRIP ; INTRAVENOUS DRIP
     Route: 041
  5. FENTANYL CITRATE [Suspect]
     Indication: ALCOHOL WITHDRAWAL SYNDROME
     Dosage: SEE IMAGE
     Route: 042
  6. FENTANYL CITRATE [Suspect]
     Indication: PAIN
     Dosage: SEE IMAGE
     Route: 042

REACTIONS (9)
  - CARDIAC ARREST [None]
  - HYPERTENSION [None]
  - PYREXIA [None]
  - RESPIRATORY ARREST [None]
  - NEUROLOGICAL DECOMPENSATION [None]
  - UNRESPONSIVE TO STIMULI [None]
  - THERAPEUTIC RESPONSE DECREASED [None]
  - TACHYCARDIA [None]
  - TREMOR [None]
